FAERS Safety Report 13068567 (Version 2)
Quarter: 2017Q1

REPORT INFORMATION
  Report Type: Spontaneous
  Country: FR (occurrence: FR)
  Receive Date: 20161228
  Receipt Date: 20170113
  Transmission Date: 20170428
  Serious: Yes (Hospitalization)
  Sender: FDA-Public Use
  Company Number: FR-ALLERGAN-1682371US

PATIENT
  Age: 57 Year
  Sex: Female

DRUGS (8)
  1. QUETIAPINE ZENECA [Suspect]
     Active Substance: QUETIAPINE
     Indication: SUICIDE ATTEMPT
     Dosage: UNK
     Route: 048
     Dates: start: 20160624, end: 20160624
  2. NOCTAMIDE [Suspect]
     Active Substance: LORMETAZEPAM
     Indication: SUICIDE ATTEMPT
     Dosage: UNK
     Route: 048
     Dates: start: 20160624, end: 20160624
  3. MILNACIPRAN - BP [Suspect]
     Active Substance: MILNACIPRAN
     Dosage: 100 MG, QD
     Route: 048
  4. QUETIAPINE ZENECA [Suspect]
     Active Substance: QUETIAPINE
     Dosage: 100 MG, QD
     Route: 048
  5. MILNACIPRAN - BP [Suspect]
     Active Substance: MILNACIPRAN
     Indication: SUICIDE ATTEMPT
     Dosage: UNK
     Route: 048
     Dates: start: 20160624, end: 20160624
  6. LYSANXIA [Suspect]
     Active Substance: PRAZEPAM
     Indication: SUICIDE ATTEMPT
     Dosage: UNK
     Route: 048
     Dates: start: 20160624, end: 20160624
  7. LYSANXIA [Suspect]
     Active Substance: PRAZEPAM
     Dosage: 10 MG, QID
     Route: 048
  8. NOCTAMIDE [Suspect]
     Active Substance: LORMETAZEPAM
     Dosage: 1 MG, QD
     Route: 048

REACTIONS (4)
  - Suicide attempt [Recovered/Resolved]
  - Off label use [Unknown]
  - Coma scale abnormal [Recovered/Resolved]
  - Intentional overdose [Recovered/Resolved]

NARRATIVE: CASE EVENT DATE: 20160624
